FAERS Safety Report 4402744-4 (Version None)
Quarter: 2004Q3

REPORT INFORMATION
  Report Type: 
  Country: None (occurrence: None)
  Receive Date: 20040721
  Receipt Date: 20040301
  Transmission Date: 20050211
  Serious: No
  Sender: FDA-Public Use
  Company Number: US-BRISTOL-MYERS SQUIBB COMPANY-12520672

PATIENT
  Age: 57 Year
  Sex: Female
  Weight: 69 kg

DRUGS (1)
  1. ESTRACE [Suspect]
     Indication: HORMONE REPLACEMENT THERAPY
     Route: 048
     Dates: start: 20000101, end: 20040201

REACTIONS (5)
  - ABDOMINAL PAIN LOWER [None]
  - BREAST TENDERNESS [None]
  - DIZZINESS [None]
  - METRORRHAGIA [None]
  - RASH MACULAR [None]
